FAERS Safety Report 14724101 (Version 6)
Quarter: 2020Q3

REPORT INFORMATION
  Report Type: Report from Study
  Country: US (occurrence: US)
  Receive Date: 20180405
  Receipt Date: 20200803
  Transmission Date: 20201102
  Serious: Yes (Death, Hospitalization, Other)
  Sender: FDA-Public Use
  Company Number: US-ACTELION-A-NJ2018-170163

PATIENT
  Age: 74 Year
  Sex: Female
  Weight: 46.26 kg

DRUGS (1)
  1. TRACLEER [Suspect]
     Active Substance: BOSENTAN
     Indication: PULMONARY ARTERIAL HYPERTENSION
     Dosage: 125 MG, BID
     Route: 048

REACTIONS (9)
  - Cardiac arrest [Unknown]
  - Sciatica [Unknown]
  - Neoplasm malignant [Unknown]
  - Pneumonia [Unknown]
  - Malaise [Unknown]
  - Weight decreased [Unknown]
  - Hospitalisation [Unknown]
  - Dementia [Fatal]
  - Catheter removal [Unknown]

NARRATIVE: CASE EVENT DATE: 201802
